FAERS Safety Report 12086030 (Version 7)
Quarter: 2025Q4

REPORT INFORMATION
  Report Type: Spontaneous
  Country: EU (occurrence: EU)
  Receive Date: 20160217
  Receipt Date: 20251217
  Transmission Date: 20260119
  Serious: Yes (Death, Life-Threatening, Hospitalization, Other)
  Sender: BAXTER
  Company Number: EU-BAXTER-2016BAX006852

PATIENT
  Sex: Female
  Weight: 83 kg

DRUGS (20)
  1. CYCLOPHOSPHAMIDE [Suspect]
     Active Substance: CYCLOPHOSPHAMIDE
     Indication: Breast cancer
     Dosage: 600 MG/M2, CYCLICAL (INFUSION, FIRST COURSE)
     Route: 042
     Dates: start: 20110421, end: 20110616
  2. CYCLOPHOSPHAMIDE [Suspect]
     Active Substance: CYCLOPHOSPHAMIDE
     Dosage: 600 MG/M2, CYCLICAL (INTRAVENOUS INFUSION)
     Route: 042
     Dates: start: 20110512, end: 20110512
  3. CYCLOPHOSPHAMIDE [Suspect]
     Active Substance: CYCLOPHOSPHAMIDE
     Dosage: 600 MG/M2, CYCLICAL (INTRAVENOUS INFUSION)
     Route: 042
     Dates: start: 20110603, end: 20110603
  4. CYCLOPHOSPHAMIDE [Suspect]
     Active Substance: CYCLOPHOSPHAMIDE
     Indication: Breast cancer
     Dosage: 1 DOSAGE FORM, CYCLICAL
     Route: 042
     Dates: start: 20110616, end: 20110616
  5. CYCLOPHOSPHAMIDE [Suspect]
     Active Substance: CYCLOPHOSPHAMIDE
     Dosage: 1 DOSAGE FORM, CYCLICAL
     Route: 042
     Dates: start: 20110609, end: 20110609
  6. CYCLOPHOSPHAMIDE [Suspect]
     Active Substance: CYCLOPHOSPHAMIDE
     Dosage: 1 DOSAGE FORM, CYCLICAL
     Route: 042
     Dates: start: 20110526, end: 20110526
  7. CYCLOPHOSPHAMIDE [Suspect]
     Active Substance: CYCLOPHOSPHAMIDE
     Dosage: 1 DOSAGE FORM, CYCLICAL
     Route: 042
     Dates: start: 20110519, end: 20110519
  8. TAXOTERE [Suspect]
     Active Substance: DOCETAXEL
     Indication: Breast cancer
     Dosage: 75 MG/M2, CYCLICAL (INFUSION, SINGLE DOSE )
     Route: 042
     Dates: start: 20110421, end: 20110421
  9. PACLITAXEL [Suspect]
     Active Substance: PACLITAXEL
     Indication: Breast cancer
     Dosage: 80 MG/M2, CYCLICAL (INTRAVENOUS INFUSION)
     Route: 042
     Dates: start: 20110512, end: 20110512
  10. PACLITAXEL [Suspect]
     Active Substance: PACLITAXEL
     Dosage: 80 MG/M2, CYCLICAL (INTRAVENOUS INFUSION)
     Route: 042
     Dates: start: 20110519, end: 20110519
  11. PACLITAXEL [Suspect]
     Active Substance: PACLITAXEL
     Dosage: 80 MG/M2, CYCLICAL (INTRAVENOUS INFUSION)
     Route: 042
     Dates: start: 20110526, end: 20110526
  12. PACLITAXEL [Suspect]
     Active Substance: PACLITAXEL
     Dosage: 80 MG/M2, CYCLICAL (INTRAVENOUS INFUSION)
     Route: 042
     Dates: start: 20110603, end: 20110603
  13. PACLITAXEL [Suspect]
     Active Substance: PACLITAXEL
     Dosage: 80 MG/M2, CYCLICAL (INTRAVENOUS INFUSION)
     Route: 042
     Dates: start: 20110609, end: 20110609
  14. PACLITAXEL [Suspect]
     Active Substance: PACLITAXEL
     Dosage: 80 MG/M2, CYCLICAL (INTRAVENOUS INFUSION)
     Route: 042
     Dates: start: 20110616, end: 20110616
  15. FEMARA [Suspect]
     Active Substance: LETROZOLE
     Indication: Breast cancer
     Dosage: 2.5 MILLIGRAM,QD
     Route: 048
     Dates: start: 20110828, end: 20111027
  16. FEMARA [Suspect]
     Active Substance: LETROZOLE
     Indication: Hormone therapy
     Dosage: UNK
     Route: 065
  17. EXEMESTANE [Suspect]
     Active Substance: EXEMESTANE
     Indication: Breast cancer
     Dosage: 25 MILLIGRAM,QD
     Route: 065
     Dates: start: 20111115, end: 20120403
  18. TAMOXIFEN CITRATE [Suspect]
     Active Substance: TAMOXIFEN CITRATE
     Indication: Breast cancer
     Dosage: UNK
     Route: 048
     Dates: start: 20120410, end: 20130910
  19. AUGMENTIN [Concomitant]
     Active Substance: AMOXICILLIN\CLAVULANATE POTASSIUM
     Indication: Infection
     Dosage: 3 G, QD
     Route: 065
     Dates: start: 20110623, end: 20110630
  20. TAMOXIFEN [Concomitant]
     Active Substance: TAMOXIFEN
     Indication: Breast cancer
     Dosage: UNK
     Route: 048
     Dates: start: 2011, end: 201109

REACTIONS (47)
  - Chronic myelomonocytic leukaemia [Fatal]
  - Hyperkalaemia [Unknown]
  - Skin toxicity [Recovered/Resolved]
  - Cholecystitis [Unknown]
  - Upper respiratory fungal infection [Unknown]
  - Orthostatic hypotension [Unknown]
  - Bone pain [Recovered/Resolved]
  - Drug eruption [Unknown]
  - Anxiety [Unknown]
  - Insomnia [Unknown]
  - Dermatitis acneiform [Unknown]
  - Epistaxis [Unknown]
  - Neuromuscular toxicity [Unknown]
  - Dry mouth [Unknown]
  - Sleep disorder [Unknown]
  - Splenomegaly [Unknown]
  - Marrow hyperplasia [Unknown]
  - White blood cell count increased [Unknown]
  - Generalised oedema [Not Recovered/Not Resolved]
  - Decubitus ulcer [Not Recovered/Not Resolved]
  - Staphylococcal sepsis [Unknown]
  - Device related infection [Unknown]
  - Enterocolitis [Unknown]
  - Clostridium difficile infection [Unknown]
  - Cardiac failure [Fatal]
  - Toxic skin eruption [Recovering/Resolving]
  - Malignant neoplasm progression [Unknown]
  - Acute myeloid leukaemia [Unknown]
  - Atrial fibrillation [Unknown]
  - Pulmonary arterial hypertension [Unknown]
  - Malaise [Unknown]
  - Diarrhoea [Recovered/Resolved]
  - Pneumonia [Unknown]
  - Arthralgia [Unknown]
  - Abdominal pain upper [Unknown]
  - Pyrexia [Unknown]
  - Dyspnoea [Unknown]
  - Tachycardia [Unknown]
  - Pleural effusion [Unknown]
  - Headache [Unknown]
  - Nausea [Unknown]
  - Chest pain [Unknown]
  - Blood pressure abnormal [Unknown]
  - Hyponatraemia [Unknown]
  - Acute pulmonary oedema [Unknown]
  - Lung disorder [Unknown]
  - Drug intolerance [Unknown]

NARRATIVE: CASE EVENT DATE: 20110101
